FAERS Safety Report 23470146 (Version 1)
Quarter: 2024Q1

REPORT INFORMATION
  Report Type: Spontaneous
  Country: JP (occurrence: JP)
  Receive Date: 20240202
  Receipt Date: 20240202
  Transmission Date: 20240410
  Serious: Yes (Life-Threatening, Hospitalization, Other)
  Sender: FDA-Public Use
  Company Number: JP-TAIHO-2023-004063

PATIENT
  Age: 70 Year
  Sex: Male
  Weight: 67.3 kg

DRUGS (3)
  1. ABRAXANE [Suspect]
     Active Substance: PACLITAXEL
     Indication: Lung squamous cell carcinoma metastatic
     Dosage: NI, 4 CYCLES, (75 MG/M2, 140 MG/BODY, BODY SURFACE AREA 1.83 M2)
     Route: 041
     Dates: start: 20200129
  2. CARBOPLATIN [Suspect]
     Active Substance: CARBOPLATIN
     Indication: Lung squamous cell carcinoma metastatic
     Dosage: NI, 4 CYCLES
     Dates: start: 20200129
  3. CARBOPLATIN [Suspect]
     Active Substance: CARBOPLATIN
     Dosage: NI, 4 CYCLES

REACTIONS (2)
  - Anaemia [Recovering/Resolving]
  - Neutropenia [Recovering/Resolving]
